FAERS Safety Report 24106404 (Version 1)
Quarter: 2024Q3

REPORT INFORMATION
  Report Type: Spontaneous
  Country: US (occurrence: None)
  Receive Date: 20240716
  Receipt Date: 20240716
  Transmission Date: 20241017
  Serious: Yes (Other)
  Sender: Public
  Company Number: None

PATIENT
  Age: 79 Year
  Sex: Female
  Weight: 67.5 kg

DRUGS (1)
  1. ELIQUIS [Suspect]
     Active Substance: APIXABAN
     Indication: Thrombosis
     Dosage: 60 TABLETS TWICE A DAY ORAL
     Route: 048
     Dates: start: 20240627, end: 20240709

REACTIONS (6)
  - Chromaturia [None]
  - Chromaturia [None]
  - Urine odour abnormal [None]
  - Haemorrhage urinary tract [None]
  - Abdominal pain [None]
  - Urine abnormality [None]

NARRATIVE: CASE EVENT DATE: 20240709
